FAERS Safety Report 23100771 (Version 1)
Quarter: 2023Q4

REPORT INFORMATION
  Report Type: Spontaneous
  Country: US (occurrence: None)
  Receive Date: 20231021
  Receipt Date: 20231021
  Transmission Date: 20240109
  Serious: Yes (Hospitalization)
  Sender: FDA-Public Use
  Company Number: None

PATIENT
  Age: 74 Year
  Sex: Female

DRUGS (1)
  1. VALSARTAN [Suspect]
     Active Substance: VALSARTAN
     Dosage: FREQUENCY : DAILY;?
     Route: 048
     Dates: start: 20150505, end: 20230327

REACTIONS (3)
  - Angioedema [None]
  - Lip swelling [None]
  - Hypertension [None]

NARRATIVE: CASE EVENT DATE: 20230324
